FAERS Safety Report 10910960 (Version 1)
Quarter: 2015Q1

REPORT INFORMATION
  Report Type: Report from Study
  Country: TW (occurrence: TW)
  Receive Date: 20150312
  Receipt Date: 20150312
  Transmission Date: 20150721
  Serious: Yes (Hospitalization, Other)
  Sender: FDA-Public Use
  Company Number: TW-SA-2014SA058660

PATIENT
  Age: 34 Month
  Sex: Male
  Weight: 16 kg

DRUGS (5)
  1. THYMOGLOBULIN [Suspect]
     Active Substance: LAPINE T-LYMPHOCYTE IMMUNE GLOBULIN
     Indication: APLASTIC ANAEMIA
     Dosage: START DATE: 06-AUG AND STOP DATE AS 13-AUG
     Route: 041
     Dates: start: 20090806, end: 20090807
  2. THYMOGLOBULIN [Suspect]
     Active Substance: LAPINE T-LYMPHOCYTE IMMUNE GLOBULIN
     Indication: APLASTIC ANAEMIA
     Route: 041
     Dates: start: 20090808, end: 20090812
  3. CYCLOSPORIN A [Concomitant]
     Active Substance: CYCLOSPORINE
  4. SOLU-CORTEF [Concomitant]
     Active Substance: HYDROCORTISONE SODIUM SUCCINATE
     Indication: PREMEDICATION
     Dosage: PRIOR TO THYMOGLOBULIN
     Route: 042
     Dates: start: 2009
  5. RED BLOOD CELLS [Concomitant]
     Active Substance: HUMAN RED BLOOD CELL
     Dosage: DOSE:1 UNIT(S)
     Dates: start: 20090827

REACTIONS (3)
  - Pyrexia [Recovered/Resolved]
  - Oral herpes [Recovered/Resolved]
  - Febrile neutropenia [Recovered/Resolved]

NARRATIVE: CASE EVENT DATE: 20090806
